FAERS Safety Report 5487287-1 (Version None)
Quarter: 2007Q4

REPORT INFORMATION
  Report Type: 
  Country: None (occurrence: None)
  Receive Date: 20071015
  Receipt Date: 20071002
  Transmission Date: 20080405
  Serious: Yes (Hospitalization)
  Sender: FDA-Public Use
  Company Number: 019123

PATIENT
  Age: 22 Year
  Sex: Female
  Weight: 68 kg

DRUGS (1)
  1. PLAN B [Suspect]
     Indication: POST COITAL CONTRACEPTION
     Dosage: 1 TABLET, Q12HR, ORAL
     Route: 048
     Dates: start: 20070923

REACTIONS (3)
  - DRUG EXPOSURE DURING PREGNANCY [None]
  - INTENTIONAL SELF-INJURY [None]
  - PREGNANCY AFTER POST COITAL CONTRACEPTION [None]
